FAERS Safety Report 13603874 (Version 1)
Quarter: 2017Q2

REPORT INFORMATION
  Report Type: Spontaneous
  Country: US (occurrence: US)
  Receive Date: 20170602
  Receipt Date: 20170602
  Transmission Date: 20170830
  Serious: No
  Sender: FDA-Public Use
  Company Number: US-AUROBINDO-AUR-APU-2017-31835

PATIENT
  Sex: Female

DRUGS (1)
  1. VENLAFAXINE TABLET [Suspect]
     Active Substance: VENLAFAXINE HYDROCHLORIDE
     Indication: PRODUCT USED FOR UNKNOWN INDICATION
     Dosage: 150 MG, 2 TABLETS DAILY
     Route: 065

REACTIONS (2)
  - Product quality issue [None]
  - Drug effect decreased [Unknown]
